FAERS Safety Report 9269589 (Version 1)
Quarter: 2013Q2

REPORT INFORMATION
  Report Type: Report from Study
  Country: JP (occurrence: JP)
  Receive Date: 20130503
  Receipt Date: 20130503
  Transmission Date: 20140414
  Serious: Yes (Hospitalization)
  Sender: FDA-Public Use
  Company Number: JP-NOVOPROD-376632

PATIENT
  Age: 53 Year
  Sex: Male
  Weight: 81 kg

DRUGS (4)
  1. NORDITROPIN FLEXPRO 10 MG/ML [Suspect]
     Indication: GROWTH HORMONE DEFICIENCY
     Dosage: 0.25 MG, QD
     Route: 058
     Dates: start: 20110221
  2. THYRADIN S [Concomitant]
     Indication: HYPOTHYROIDISM
     Route: 048
  3. TESTOSTERONE ENANTATE [Concomitant]
     Indication: HYPOGONADISM
     Dosage: UNK
     Dates: start: 199708
  4. TESTOSTERONE ENANTATE [Concomitant]
     Indication: BLOOD LUTEINISING HORMONE DECREASED

REACTIONS (1)
  - Peripheral arterial occlusive disease [Recovering/Resolving]
